FAERS Safety Report 7555867-5 (Version None)
Quarter: 2011Q2

REPORT INFORMATION
  Report Type: 
  Country: None (occurrence: None)
  Receive Date: 20110618
  Receipt Date: 20110606
  Transmission Date: 20111010
  Serious: Yes (Death, Hospitalization, Other)
  Sender: FDA-Public Use
  Company Number: US-BAYER-201041783NA

PATIENT
  Age: 66 Year
  Sex: Female

DRUGS (1)
  1. TRASYLOL [Suspect]
     Indication: CORONARY ARTERY BYPASS
     Dates: start: 20060120

REACTIONS (16)
  - RENAL FAILURE [None]
  - STRESS [None]
  - UNEVALUABLE EVENT [None]
  - HYPOREFLEXIA [None]
  - CEREBROVASCULAR ACCIDENT [None]
  - MYDRIASIS [None]
  - PAIN [None]
  - RENAL IMPAIRMENT [None]
  - PUPIL FIXED [None]
  - RENAL INJURY [None]
  - FEAR [None]
  - MULTI-ORGAN FAILURE [None]
  - EMOTIONAL DISTRESS [None]
  - INJURY [None]
  - DEATH [None]
  - ANXIETY [None]
